FAERS Safety Report 4436881-5 (Version None)
Quarter: 2004Q3

REPORT INFORMATION
  Report Type: 
  Country: None (occurrence: None)
  Receive Date: 20040830
  Receipt Date: 20040816
  Transmission Date: 20050211
  Serious: Yes (Other)
  Sender: FDA-Public Use
  Company Number: US-JNJFOC-20040200144

PATIENT
  Sex: Male

DRUGS (17)
  1. RISPERDAL [Suspect]
     Route: 049
  2. RISPERDAL [Suspect]
     Indication: DEPRESSION
     Route: 049
  3. RISPERDAL [Suspect]
     Route: 049
  4. ATENOLOL [Concomitant]
  5. ATORVASTATIN CALCIUM [Concomitant]
  6. INSULIN [Concomitant]
  7. SEVELAMER HYDROCHLORIDE [Concomitant]
  8. BENZTROPINE MESYLATE [Concomitant]
  9. DIVALPROEX SODIUM [Concomitant]
  10. DIPHENHYDRAMINE HCL [Concomitant]
  11. FLUTICASONE PROPIONATE [Concomitant]
  12. VITAMIN B COMPLEX CAP [Concomitant]
  13. VITAMIN B COMPLEX CAP [Concomitant]
  14. VITAMIN B COMPLEX CAP [Concomitant]
  15. VITAMIN B COMPLEX CAP [Concomitant]
  16. VITAMIN B COMPLEX CAP [Concomitant]
  17. EPOETIN ALFA [Concomitant]

REACTIONS (8)
  - CEREBROVASCULAR ACCIDENT [None]
  - CHOKING [None]
  - INSOMNIA [None]
  - LOSS OF CONSCIOUSNESS [None]
  - MYELOFIBROSIS [None]
  - TACHYCARDIA [None]
  - TRANSIENT ISCHAEMIC ATTACK [None]
  - TREMOR [None]
